FAERS Safety Report 8826346 (Version 1)
Quarter: 2012Q4

REPORT INFORMATION
  Report Type: Report from Study
  Country: CA (occurrence: CA)
  Receive Date: 20121008
  Receipt Date: 20121008
  Transmission Date: 20130627
  Serious: Yes (Hospitalization, Other)
  Sender: FDA-Public Use
  Company Number: CA-JNJFOC-20120912881

PATIENT
  Age: 24 Year
  Sex: Male
  Weight: 61 kg

DRUGS (4)
  1. REMICADE [Suspect]
     Indication: CROHN^S DISEASE
     Route: 042
     Dates: start: 20120614
  2. ENTOCORT [Concomitant]
     Route: 065
  3. 6MP [Concomitant]
     Route: 065
  4. TECTA [Concomitant]
     Route: 065

REACTIONS (4)
  - Transient ischaemic attack [Recovered/Resolved]
  - Back pain [Recovered/Resolved]
  - Gastric ulcer [Unknown]
  - Stress [Unknown]
